FAERS Safety Report 14364316 (Version 1)
Quarter: 2018Q1

REPORT INFORMATION
  Report Type: Spontaneous
  Country: US (occurrence: US)
  Receive Date: 20180108
  Receipt Date: 20180108
  Transmission Date: 20180509
  Serious: No
  Sender: FDA-Public Use
  Company Number: US-SUNOVION-2017SUN005513

PATIENT

DRUGS (1)
  1. APTIOM [Suspect]
     Active Substance: ESLICARBAZEPINE ACETATE
     Indication: EPILEPSY
     Dosage: 200 MG, QD
     Route: 048

REACTIONS (7)
  - Dysphemia [Unknown]
  - Communication disorder [Unknown]
  - Vertigo [Unknown]
  - Feeling abnormal [Unknown]
  - Aphasia [Unknown]
  - Thinking abnormal [Unknown]
  - Dizziness [Not Recovered/Not Resolved]
